FAERS Safety Report 12828099 (Version 1)
Quarter: 2016Q4

REPORT INFORMATION
  Report Type: Spontaneous
  Country: JP (occurrence: JP)
  Receive Date: 20161007
  Receipt Date: 20161007
  Transmission Date: 20170207
  Serious: Yes (Other)
  Sender: FDA-Public Use
  Company Number: JP-PRESTIUM-2016RN000463

PATIENT

DRUGS (1)
  1. ZOVIRAX [Suspect]
     Active Substance: ACYCLOVIR
     Indication: HERPES ZOSTER DISSEMINATED
     Dosage: 10 MG/KG, 1D
     Route: 048

REACTIONS (3)
  - Altered state of consciousness [Unknown]
  - Subarachnoid haemorrhage [Unknown]
  - Viral vasculitis [Unknown]
